FAERS Safety Report 14183988 (Version 4)
Quarter: 2018Q3

REPORT INFORMATION
  Report Type: Spontaneous
  Country: US (occurrence: US)
  Receive Date: 20171113
  Receipt Date: 20180814
  Transmission Date: 20181010
  Serious: No
  Sender: FDA-Public Use
  Company Number: US-CELLTRION INC.-2017US011847

PATIENT

DRUGS (3)
  1. INFLECTRA [Suspect]
     Active Substance: INFLIXIMAB-DYYB
     Indication: COLITIS ULCERATIVE
     Dosage: 600 MG EVERY 8?12 WEEKS
     Route: 065
  2. INFLECTRA [Suspect]
     Active Substance: INFLIXIMAB-DYYB
     Dosage: 600 MG EVERY 8?12 WEEKS
     Route: 065
     Dates: start: 20180305, end: 20180305
  3. INFLECTRA [Suspect]
     Active Substance: INFLIXIMAB-DYYB
     Dosage: 600 MG EVERY 8?12 WEEKS
     Route: 065
     Dates: start: 20180608, end: 20180608

REACTIONS (2)
  - Inappropriate schedule of drug administration [Unknown]
  - Drug prescribing error [Unknown]
